FAERS Safety Report 9895929 (Version 2)
Quarter: 2014Q1

REPORT INFORMATION
  Report Type: Spontaneous
  Country: US (occurrence: US)
  Receive Date: 20140213
  Receipt Date: 20140213
  Transmission Date: 20141002
  Serious: No
  Sender: FDA-Public Use
  Company Number: US-BRISTOL-MYERS SQUIBB COMPANY-17393455

PATIENT
  Age: 50 Year
  Sex: Female
  Weight: 124.71 kg

DRUGS (2)
  1. ORENCIA FOR INJ [Suspect]
     Indication: RHEUMATOID ARTHRITIS
     Dosage: LAST INJ:26DEC2012
     Route: 058
     Dates: start: 20120404, end: 20121226
  2. PREDNISONE [Suspect]

REACTIONS (1)
  - Bronchitis [Not Recovered/Not Resolved]
